FAERS Safety Report 6107627-X (Version None)
Quarter: 2009Q1

REPORT INFORMATION
  Report Type: 
  Country: None (occurrence: None)
  Receive Date: 20090302
  Receipt Date: 20081106
  Transmission Date: 20090719
  Serious: Yes (Other)
  Sender: FDA-Public Use
  Company Number: ALA_00203_2008

PATIENT
  Sex: Female

DRUGS (1)
  1. REGLAN [Suspect]
     Indication: PREOPERATIVE CARE
     Dosage: (1 PRE-OP DOSE; 2 POST-OP DOSES INTRAVENOUS
     Route: 042
     Dates: start: 20030301

REACTIONS (6)
  - AKATHISIA [None]
  - ANXIETY [None]
  - BLOOD PRESSURE INCREASED [None]
  - DEPRESSION [None]
  - MUSCLE TIGHTNESS [None]
  - TACHYCARDIA [None]
